FAERS Safety Report 4662611-8 (Version None)
Quarter: 2005Q2

REPORT INFORMATION
  Report Type: 
  Country: None (occurrence: None)
  Receive Date: 20050516
  Receipt Date: 20050509
  Transmission Date: 20051028
  Serious: Yes (Death)
  Sender: FDA-Public Use
  Company Number: 2005GB00907

PATIENT
  Age: 75 Year
  Sex: Female

DRUGS (14)
  1. BUDESONIDE [Suspect]
     Indication: ASTHMA
     Route: 055
     Dates: start: 20020301
  2. PROPOFOL [Suspect]
     Indication: ANAESTHESIA
     Route: 042
     Dates: start: 20020301, end: 20020301
  3. LISINOPRIL [Suspect]
     Indication: HYPERTENSION
     Route: 065
     Dates: start: 20020301
  4. ACETAMINOPHEN W/ CODEINE [Suspect]
     Indication: RHEUMATOID ARTHRITIS
     Route: 065
     Dates: start: 20020301
  5. DILTIAZEM [Suspect]
     Indication: HYPERTENSION
     Route: 065
     Dates: start: 20020301
  6. ASPIRIN [Suspect]
     Indication: PAIN
     Route: 065
     Dates: start: 20020301
  7. LANSOPRAZOLE [Suspect]
     Indication: DUODENAL ULCER
     Route: 065
     Dates: start: 20020301
  8. ARAVA [Suspect]
     Indication: RHEUMATOID ARTHRITIS
     Route: 065
     Dates: start: 20020301
  9. NITROGLYCERIN [Suspect]
     Indication: PAIN
     Route: 048
     Dates: start: 20020301
  10. ATORVASTATIN CALCIUM [Suspect]
     Indication: HYPERCHOLESTEROLAEMIA
     Route: 065
     Dates: start: 19990101
  11. QUININE SULFATE [Suspect]
     Indication: MUSCLE SPASMS
     Route: 065
  12. MIDAZOLAM HCL [Suspect]
     Indication: ANAESTHESIA
     Route: 042
     Dates: start: 20020301, end: 20020301
  13. FENTANYL [Suspect]
     Indication: ANAESTHESIA
     Route: 042
     Dates: start: 20020301, end: 20020301
  14. PANCURONIUM [Suspect]
     Indication: MUSCLE RELAXANT THERAPY
     Route: 065
     Dates: start: 20020301, end: 20020301

REACTIONS (11)
  - COAGULOPATHY [None]
  - GASTROINTESTINAL HAEMORRHAGE [None]
  - HAEMATEMESIS [None]
  - HAEMODIALYSIS [None]
  - HEPATIC FAILURE [None]
  - HEPATIC INFARCTION [None]
  - HEPATOCELLULAR DAMAGE [None]
  - HEPATORENAL SYNDROME [None]
  - HYPOVOLAEMIA [None]
  - LABILE BLOOD PRESSURE [None]
  - RENAL FAILURE [None]
